FAERS Safety Report 9672364 (Version 1)
Quarter: 2013Q4

REPORT INFORMATION
  Report Type: Report from Study
  Country: US (occurrence: US)
  Receive Date: 20131106
  Receipt Date: 20131106
  Transmission Date: 20140711
  Serious: Yes (Hospitalization)
  Sender: FDA-Public Use
  Company Number: PHEH2013US023156

PATIENT
  Sex: Female
  Weight: 25.85 kg

DRUGS (3)
  1. TOBI [Suspect]
     Dosage: 300 MG, BID (FOR 28 DAYS ON AND 28 DAYS OFF)
     Dates: start: 20130214
  2. PULMOZYME [Concomitant]
     Dosage: UNK UKN, UNK 6^S
  3. TOBI PODHALER [Concomitant]
     Dosage: UNK UKN, UNK

REACTIONS (1)
  - Infective pulmonary exacerbation of cystic fibrosis [Recovered/Resolved]
